FAERS Safety Report 23167080 (Version 2)
Quarter: 2024Q1

REPORT INFORMATION
  Report Type: Spontaneous
  Country: MX (occurrence: MX)
  Receive Date: 20231109
  Receipt Date: 20240111
  Transmission Date: 20240410
  Serious: Yes (Other)
  Sender: FDA-Public Use
  Company Number: MX-PFIZER INC-202300355302

PATIENT
  Age: 73 Year
  Sex: Female

DRUGS (3)
  1. PRISTIQ EXTENDED-RELEASE [Suspect]
     Active Substance: DESVENLAFAXINE SUCCINATE
     Indication: Depression
     Dosage: 100 MG, DAILY
     Dates: start: 201210
  2. LEVOMEPROMAZINE HYDROCHLORIDE [Concomitant]
     Active Substance: LEVOMEPROMAZINE HYDROCHLORIDE
     Indication: Mental disorder
     Dosage: UNK (1/4 TABLET DAILY)
  3. CLONAZEPAM [Concomitant]
     Active Substance: CLONAZEPAM
     Indication: Mental disorder
     Dosage: 2 MG, 2X/DAY (1 OR 1.5 TABLET IN THE MORNING AND 1 AT NIGHT)

REACTIONS (21)
  - Pneumonia [Unknown]
  - Diabetes mellitus [Unknown]
  - Hysterectomy [Unknown]
  - Cataract [Unknown]
  - Paranasal cyst [Unknown]
  - Gallbladder disorder [Unknown]
  - Auditory disorder [Unknown]
  - Chronic obstructive pulmonary disease [Unknown]
  - Hypertension [Unknown]
  - Ovarian cyst [Unknown]
  - Neurotransmitter level altered [Unknown]
  - Anxiety [Unknown]
  - Depression [Unknown]
  - Thyroid disorder [Unknown]
  - Asthma [Unknown]
  - Hepatic steatosis [Unknown]
  - Renal cyst [Unknown]
  - Blood cholesterol increased [Unknown]
  - Cold urticaria [Unknown]
  - Dust allergy [Unknown]
  - Hypersensitivity [Unknown]

NARRATIVE: CASE EVENT DATE: 20180101
